FAERS Safety Report 8480315-0 (Version None)
Quarter: 2012Q2

REPORT INFORMATION
  Report Type: 
  Country: None (occurrence: None)
  Receive Date: 20120629
  Receipt Date: 20120619
  Transmission Date: 20120825
  Serious: No
  Sender: FDA-Public Use
  Company Number: US-ASTRAZENECA-2012SE41593

PATIENT
  Age: 61 Year
  Sex: Female

DRUGS (2)
  1. NEXIUM [Suspect]
     Route: 048
  2. PROTONIX [Suspect]
     Route: 065

REACTIONS (4)
  - GASTRIC DISORDER [None]
  - PHARYNGEAL DISORDER [None]
  - MALAISE [None]
  - DRUG DOSE OMISSION [None]
